FAERS Safety Report 4820582-5 (Version None)
Quarter: 2005Q4

REPORT INFORMATION
  Report Type: 
  Country: None (occurrence: None)
  Receive Date: 20051104
  Receipt Date: 20051026
  Transmission Date: 20060501
  Serious: Yes (Death, Hospitalization, Other)
  Sender: FDA-Public Use
  Company Number: JP-JNJFOC-20050405853

PATIENT
  Sex: Male
  Weight: 59 kg

DRUGS (7)
  1. REMICADE [Suspect]
     Indication: RHEUMATOID ARTHRITIS
     Dates: start: 20050324
  2. METHOTREXATE [Concomitant]
     Indication: RHEUMATOID ARTHRITIS
     Route: 048
     Dates: start: 20031224, end: 20050505
  3. PREDONINE [Concomitant]
     Indication: RHEUMATOID ARTHRITIS
     Route: 048
  4. BREDININE [Concomitant]
     Indication: RHEUMATOID ARTHRITIS
     Route: 048
  5. MOBIC [Concomitant]
     Indication: RHEUMATOID ARTHRITIS
     Route: 048
  6. TAKEPRON OD [Concomitant]
     Route: 048
  7. ADRENAL HORMONE PREPARATIONS [Concomitant]
     Indication: RHEUMATOID ARTHRITIS

REACTIONS (1)
  - GASTRIC CANCER [None]
